FAERS Safety Report 25189147 (Version 1)
Quarter: 2025Q2

REPORT INFORMATION
  Report Type: Spontaneous
  Country: US (occurrence: None)
  Receive Date: 20250411
  Receipt Date: 20250411
  Transmission Date: 20250717
  Serious: Yes (Hospitalization)
  Sender: FDA-CTU
  Company Number: None

PATIENT
  Sex: Female

DRUGS (12)
  1. LENALIDOMIDE [Suspect]
     Active Substance: LENALIDOMIDE
     Indication: Plasma cell myeloma
     Dosage: FREQUENCY : DAILY;?
     Route: 048
     Dates: start: 20241219
  2. ACYCLOVIR CAP 200MG [Concomitant]
  3. ALLOPURINOL [Concomitant]
     Active Substance: ALLOPURINOL
  4. ASPIRIN LOW TAB 81 MG EC [Concomitant]
  5. BACTRIM OS TAB 800-160 [Concomitant]
  6. BUPRENORPHIN DIS 20MCG/HR [Concomitant]
  7. BUPRENORPHIN DIS 20MCG/HR [Concomitant]
  8. DARZALEX SOL 100/5ML [Concomitant]
  9. DICLOFENAC [Concomitant]
     Active Substance: DICLOFENAC
  10. DIPHENHYDRAM INJ 50MG/ML [Concomitant]
  11. EPIPEN 2-PAK INJ 0.3MG [Concomitant]
  12. KP VITAMIN D [Concomitant]

REACTIONS (2)
  - Thrombosis [None]
  - Therapy interrupted [None]
